FAERS Safety Report 9130671 (Version 1)
Quarter: 2013Q1

REPORT INFORMATION
  Report Type: Spontaneous
  Country: IT (occurrence: IT)
  Receive Date: 20130301
  Receipt Date: 20130301
  Transmission Date: 20140127
  Serious: Yes (Hospitalization)
  Sender: FDA-Public Use
  Company Number: IT-ABBOTT-13X-083-1055026-00

PATIENT
  Age: 76 None
  Sex: Male

DRUGS (9)
  1. CLARITHROMYCIN [Suspect]
     Indication: COUGH
     Route: 048
     Dates: start: 20130101, end: 20130109
  2. LEVOXACIN [Suspect]
     Indication: COUGH
     Route: 042
     Dates: start: 20130109, end: 20130109
  3. NITROGLICERINA [Concomitant]
     Indication: PRODUCT USED FOR UNKNOWN INDICATION
  4. LANSOX [Concomitant]
     Indication: PRODUCT USED FOR UNKNOWN INDICATION
     Route: 048
  5. CORDARONE [Concomitant]
     Indication: PRODUCT USED FOR UNKNOWN INDICATION
     Route: 048
  6. TORVAST [Concomitant]
     Indication: PRODUCT USED FOR UNKNOWN INDICATION
     Route: 048
  7. LASIX [Concomitant]
     Indication: PRODUCT USED FOR UNKNOWN INDICATION
     Route: 048
  8. CONGESCOR [Concomitant]
     Indication: PRODUCT USED FOR UNKNOWN INDICATION
     Route: 048
  9. PLAVIX [Concomitant]
     Indication: PRODUCT USED FOR UNKNOWN INDICATION
     Route: 025

REACTIONS (4)
  - Depressed level of consciousness [Unknown]
  - Dyspnoea [Unknown]
  - Gross motor delay [Unknown]
  - Sensory disturbance [Unknown]
